FAERS Safety Report 6576662-X (Version None)
Quarter: 2010Q1

REPORT INFORMATION
  Report Type: 
  Country: None (occurrence: None)
  Receive Date: 20100210
  Receipt Date: 20100129
  Transmission Date: 20100710
  Serious: Yes (Hospitalization, Other)
  Sender: FDA-Public Use
  Company Number: US-PFIZER INC-2008024517

PATIENT
  Sex: Female
  Weight: 54.5 kg

DRUGS (7)
  1. DILANTIN [Suspect]
     Indication: CONVULSION
     Dosage: 300 MG, 1X/DAY
     Route: 048
     Dates: start: 20070202, end: 20070304
  2. MOMETASONE [Concomitant]
     Dosage: 220 UG, UNK
     Dates: start: 20070202, end: 20080203
  3. METOPROLOL [Concomitant]
     Indication: HYPERTENSION
     Dosage: 100 MG, 2X/DAY
     Route: 048
     Dates: start: 20070202, end: 20080203
  4. HYDROCHLOROTHIAZIDE [Concomitant]
     Dosage: 50 MG, 1X/DAY
     Route: 048
     Dates: start: 20070202, end: 20080203
  5. FLUNISOLIDE [Concomitant]
     Dosage: 25 UG, UNK
     Dates: start: 20070202, end: 20080203
  6. DIPHENHYDRAMINE [Concomitant]
     Dosage: 50 MG, 1X/DAY
     Route: 048
     Dates: start: 20070202, end: 20080203
  7. CLONAZEPAM [Concomitant]
     Dosage: UNK
     Dates: start: 20070202, end: 20070805

REACTIONS (2)
  - SCAR [None]
  - STEVENS-JOHNSON SYNDROME [None]
